FAERS Safety Report 7006244-7 (Version None)
Quarter: 2010Q3

REPORT INFORMATION
  Report Type: 
  Country: None (occurrence: None)
  Receive Date: 20100921
  Receipt Date: 20100916
  Transmission Date: 20110219
  Serious: No
  Sender: FDA-Public Use
  Company Number: US-PFIZER INC-2010102668

PATIENT
  Age: 72 Year
  Sex: Female

DRUGS (1)
  1. NORVASC [Suspect]
     Dosage: 0.5 DF (2.5 MG), DAILY
     Dates: start: 20090701

REACTIONS (3)
  - DIZZINESS [None]
  - IMPAIRED DRIVING ABILITY [None]
  - RESTLESSNESS [None]
